FAERS Safety Report 9053419 (Version 1)
Quarter: 2013Q1

REPORT INFORMATION
  Report Type: Spontaneous
  Country: US (occurrence: None)
  Receive Date: 20130114
  Receipt Date: 20130114
  Transmission Date: 20140127
  Serious: No
  Sender: FDA-Public Use
  Company Number: 2013-00002

PATIENT
  Sex: Male

DRUGS (1)
  1. UNSPECIFIED ZICAM PRODUCTS [Suspect]
     Indication: NASOPHARYNGITIS
     Dates: start: 200812, end: 200901

REACTIONS (2)
  - Anosmia [None]
  - Ageusia [None]
